FAERS Safety Report 10015838 (Version 1)
Quarter: 2014Q1

REPORT INFORMATION
  Report Type: Spontaneous
  Country: US (occurrence: US)
  Receive Date: 20140317
  Receipt Date: 20140317
  Transmission Date: 20141002
  Serious: Yes (Other)
  Sender: FDA-Public Use
  Company Number: US-GLAXOSMITHKLINE-A1065091A

PATIENT
  Sex: Male

DRUGS (3)
  1. FLOVENT [Suspect]
     Indication: ASTHMA EXERCISE INDUCED
     Dosage: 1PUFF UNKNOWN
     Route: 055
     Dates: start: 201401, end: 201402
  2. LEVOTHYROXINE [Suspect]
     Indication: PRODUCT USED FOR UNKNOWN INDICATION
     Route: 065
  3. METOPROLOL [Concomitant]

REACTIONS (10)
  - Cardiac flutter [Unknown]
  - Depression [Unknown]
  - Discomfort [Unknown]
  - Gastric disorder [Unknown]
  - Fatigue [Unknown]
  - Palpitations [Unknown]
  - Emotional distress [Unknown]
  - Feeling abnormal [Unknown]
  - Drug administration error [Unknown]
  - Malaise [Unknown]
